FAERS Safety Report 5774580-8 (Version None)
Quarter: 2008Q2

REPORT INFORMATION
  Report Type: 
  Country: None (occurrence: None)
  Receive Date: 20080616
  Receipt Date: 20080602
  Transmission Date: 20081010
  Serious: Yes (Other)
  Sender: FDA-Public Use
  Company Number: JP-GENENTECH-256746

PATIENT
  Sex: Male

DRUGS (5)
  1. BEVACIZUMAB [Suspect]
     Indication: RECTAL CANCER
     Dosage: 10 MG/KG, QD
     Route: 041
     Dates: start: 20070724, end: 20070925
  2. OXALIPLATIN [Suspect]
     Indication: RECTAL CANCER
     Dosage: UNK, UNK
     Route: 041
     Dates: start: 20070724, end: 20070925
  3. FLUOROURACIL [Concomitant]
     Indication: RECTAL CANCER
     Dosage: UNK, UNK
     Dates: start: 20070724, end: 20070926
  4. ISOVORIN [Concomitant]
     Indication: RECTAL CANCER
     Dosage: UNK, UNK
     Dates: start: 20070724, end: 20070926
  5. LOXONIN [Concomitant]
     Indication: DRUG USE FOR UNKNOWN INDICATION

REACTIONS (3)
  - ANAPHYLACTIC SHOCK [None]
  - HYPERTENSION [None]
  - PELVIC ABSCESS [None]
